FAERS Safety Report 21615132 (Version 1)
Quarter: 2022Q4

REPORT INFORMATION
  Report Type: Spontaneous
  Country: RU (occurrence: RU)
  Receive Date: 20221118
  Receipt Date: 20221118
  Transmission Date: 20230113
  Serious: Yes (Death)
  Sender: FDA-Public Use
  Company Number: RU-PFIZER INC-PV202200105778

PATIENT
  Sex: Female

DRUGS (1)
  1. VYNDAQEL [Suspect]
     Active Substance: TAFAMIDIS MEGLUMINE
     Indication: Hereditary neuropathic amyloidosis
     Dosage: UNK

REACTIONS (1)
  - Death [Fatal]
